FAERS Safety Report 15631575 (Version 1)
Quarter: 2018Q4

REPORT INFORMATION
  Report Type: Spontaneous
  Country: US (occurrence: US)
  Receive Date: 20181119
  Receipt Date: 20181119
  Transmission Date: 20190205
  Serious: No
  Sender: FDA-Public Use
  Company Number: US-AUROBINDO-AUR-APU-2018-003281

PATIENT
  Sex: Female

DRUGS (2)
  1. AMANTADIN                          /00055901/ [Concomitant]
     Active Substance: AMANTADINE
     Indication: PRODUCT USED FOR UNKNOWN INDICATION
     Route: 065
  2. PANTOPRAZOLE SODIUM DELAYED-RELEASE TABLETS USP 20MG [Suspect]
     Active Substance: PANTOPRAZOLE SODIUM
     Indication: GASTROOESOPHAGEAL REFLUX DISEASE
     Dosage: 1 DF, DAILY
     Route: 065

REACTIONS (3)
  - Drug ineffective [Unknown]
  - Skin burning sensation [Unknown]
  - Abdominal discomfort [Unknown]
